FAERS Safety Report 8614454-8 (Version None)
Quarter: 2012Q3

REPORT INFORMATION
  Report Type: 
  Country: None (occurrence: None)
  Receive Date: 20120823
  Receipt Date: 20120817
  Transmission Date: 20120928
  Serious: Yes (Hospitalization, Other)
  Sender: FDA-Public Use
  Company Number: PHHY2011CA14591

PATIENT
  Sex: Male
  Weight: 113.38 kg

DRUGS (3)
  1. AFINITOR [Suspect]
     Indication: ECTOPIC ACTH SYNDROME
     Dosage: 10MG EVERY DAY
     Route: 048
     Dates: start: 20110501
  2. SANDOSTATIN LAR [Suspect]
     Dosage: 30 MG EVERY 2 WEEKS
     Route: 030
  3. SANDOSTATIN LAR [Suspect]
     Indication: ECTOPIC ACTH SYNDROME
     Dosage: 30 MG, QMO
     Route: 030
     Dates: start: 20101130

REACTIONS (18)
  - MUSCULOSKELETAL STIFFNESS [None]
  - THINKING ABNORMAL [None]
  - BLOOD PRESSURE INCREASED [None]
  - FATIGUE [None]
  - HORMONE LEVEL ABNORMAL [None]
  - CUSHING'S SYNDROME [None]
  - FEELING ABNORMAL [None]
  - MALAISE [None]
  - PSYCHOTIC DISORDER [None]
  - NEOPLASM MALIGNANT [None]
  - BLOOD CHOLESTEROL ABNORMAL [None]
  - MUSCLE SPASMS [None]
  - ABNORMAL DREAMS [None]
  - WEIGHT INCREASED [None]
  - BLOOD POTASSIUM DECREASED [None]
  - SWELLING [None]
  - DIABETES MELLITUS [None]
  - BLOOD CORTISOL ABNORMAL [None]
